FAERS Safety Report 16976053 (Version 1)
Quarter: 2019Q4

REPORT INFORMATION
  Report Type: Spontaneous
  Country: US (occurrence: US)
  Receive Date: 20190914
  Receipt Date: 20190914
  Transmission Date: 20200122
  Serious: No
  Sender: FDA-Public Use
  Company Number: None

PATIENT

DRUGS (1)
  1. MYCOPHENOLIC TAB 360MG DR [Suspect]
     Active Substance: MYCOPHENOLIC ACID
     Dosage: ?          OTHER DOSE:1080;?
     Route: 048
     Dates: start: 201909

REACTIONS (1)
  - Product use issue [None]

NARRATIVE: CASE EVENT DATE: 20190914
